FAERS Safety Report 4998086-9 (Version None)
Quarter: 2006Q2

REPORT INFORMATION
  Report Type: 
  Country: None (occurrence: None)
  Receive Date: 20060510
  Receipt Date: 20051003
  Transmission Date: 20061013
  Serious: Yes (Hospitalization, Disabling)
  Sender: FDA-Public Use
  Company Number: US-MERCK-0510USA02680

PATIENT
  Age: 92 Year
  Sex: Female
  Weight: 55 kg

DRUGS (5)
  1. VIOXX [Suspect]
     Indication: ARTHRITIS
     Route: 048
     Dates: start: 20040501, end: 20040901
  2. ADVIL [Concomitant]
     Route: 065
  3. ASPIRIN [Concomitant]
     Route: 065
  4. RANITIDINE [Concomitant]
     Route: 065
  5. SKELAXIN [Concomitant]
     Route: 065

REACTIONS (10)
  - CAROTID ARTERY STENOSIS [None]
  - COMPRESSION FRACTURE [None]
  - CYSTITIS [None]
  - ENCEPHALOPATHY [None]
  - ISCHAEMIC STROKE [None]
  - NAUSEA [None]
  - OSTEOPOROSIS [None]
  - PERIPHERAL VASCULAR DISORDER [None]
  - SYNCOPE [None]
  - TRANSIENT ISCHAEMIC ATTACK [None]
